FAERS Safety Report 14077763 (Version 1)
Quarter: 2017Q4

REPORT INFORMATION
  Report Type: Spontaneous
  Country: US (occurrence: US)
  Receive Date: 20171012
  Receipt Date: 20171012
  Transmission Date: 20180321
  Serious: Yes (Hospitalization, Other)
  Sender: FDA-Public Use
  Company Number: US-VISTAPHARM, INC.-VER201710-000838

PATIENT
  Sex: Male

DRUGS (3)
  1. VIVITROL [Suspect]
     Active Substance: NALTREXONE
     Route: 030
  2. METHADONE [Suspect]
     Active Substance: METHADONE HYDROCHLORIDE
     Indication: PAIN
  3. VIVITROL [Suspect]
     Active Substance: NALTREXONE
     Indication: ALCOHOL ABUSE

REACTIONS (7)
  - Coma [Not Recovered/Not Resolved]
  - Contraindicated product administered [Unknown]
  - Withdrawal syndrome [Not Recovered/Not Resolved]
  - Seizure [Not Recovered/Not Resolved]
  - Loss of consciousness [Not Recovered/Not Resolved]
  - Nervous system disorder [Not Recovered/Not Resolved]
  - Anoxia [Not Recovered/Not Resolved]
